FAERS Safety Report 21468671 (Version 2)
Quarter: 2022Q4

REPORT INFORMATION
  Report Type: Spontaneous
  Country: JP (occurrence: JP)
  Receive Date: 20221018
  Receipt Date: 20221025
  Transmission Date: 20230113
  Serious: Yes (Other)
  Sender: FDA-Public Use
  Company Number: JP-NOVARTISPH-NVSJ2022JP099202

PATIENT
  Age: 17 Year
  Sex: Female

DRUGS (2)
  1. PAZOPANIB [Suspect]
     Active Substance: PAZOPANIB
     Indication: Osteosarcoma metastatic
     Dosage: 800 MG
     Route: 048
  2. PAZOPANIB [Suspect]
     Active Substance: PAZOPANIB
     Dosage: UNK, DOSE REDUCED
     Route: 048

REACTIONS (4)
  - Diarrhoea [Unknown]
  - Malaise [Unknown]
  - Product use in unapproved indication [Unknown]
  - Product use issue [Unknown]
